FAERS Safety Report 6542292-9 (Version None)
Quarter: 2010Q1

REPORT INFORMATION
  Report Type: 
  Country: None (occurrence: None)
  Receive Date: 20100114
  Receipt Date: 20100114
  Transmission Date: 20100710
  Serious: Yes (Life-Threatening, Other)
  Sender: FDA-Public Use
  Company Number: None

PATIENT
  Age: 35 Year
  Sex: Male
  Weight: 97.5234 kg

DRUGS (10)
  1. EMBEDA [Suspect]
     Indication: ELECTROCONVULSIVE THERAPY
     Dosage: 100MG CAPS EVERY 12  HOURS PO
     Route: 048
     Dates: start: 20091219, end: 20100114
  2. EMBEDA [Suspect]
     Indication: MYOFASCIAL PAIN SYNDROME
     Dosage: 100MG CAPS EVERY 12  HOURS PO
     Route: 048
     Dates: start: 20091219, end: 20100114
  3. EMBEDA [Suspect]
     Indication: NEURALGIA
     Dosage: 100MG CAPS EVERY 12  HOURS PO
     Route: 048
     Dates: start: 20091219, end: 20100114
  4. KADIAN [Concomitant]
  5. DILAUDID [Concomitant]
  6. VALIUM [Concomitant]
  7. NORTRIPTYLINE [Concomitant]
  8. SEROQUEL [Concomitant]
  9. MIRTAZAPINE [Concomitant]
  10. WELLBUTRIN XL [Concomitant]

REACTIONS (12)
  - APPARENT DEATH [None]
  - DELIRIUM [None]
  - DIARRHOEA [None]
  - FAECAL INCONTINENCE [None]
  - FALL [None]
  - HALLUCINATION, AUDITORY [None]
  - MENTAL STATUS CHANGES [None]
  - PARAESTHESIA [None]
  - PARALYSIS [None]
  - PARANOIA [None]
  - PSYCHOTIC DISORDER [None]
  - TINNITUS [None]
